FAERS Safety Report 5625431-3 (Version None)
Quarter: 2008Q1

REPORT INFORMATION
  Report Type: 
  Country: None (occurrence: None)
  Receive Date: 20080211
  Receipt Date: 20080128
  Transmission Date: 20080703
  Serious: Yes (Disabling, Other)
  Sender: FDA-Public Use
  Company Number: 430011J07USA

PATIENT
  Age: 56 Year
  Sex: Female
  Weight: 95.709 kg

DRUGS (2)
  1. NOVANTRONE [Suspect]
     Indication: MULTIPLE SCLEROSIS
     Dosage: 25 MG, 1 IN 3 MONTHS, INTRAVENOUS (NOT OTHERWISE SPECIFIED)
     Route: 042
     Dates: start: 20011008, end: 20030626
  2. SOLUMDEROL (METHYLPREDNISOLONE) [Concomitant]

REACTIONS (1)
  - CONGESTIVE CARDIOMYOPATHY [None]
